FAERS Safety Report 25522632 (Version 1)
Quarter: 2025Q3

REPORT INFORMATION
  Report Type: Spontaneous
  Country: TW (occurrence: TW)
  Receive Date: 20250707
  Receipt Date: 20250707
  Transmission Date: 20251021
  Serious: Yes (Hospitalization, Other)
  Sender: ASTELLAS
  Company Number: TW-ASTELLAS-2025-AER-035552

PATIENT
  Age: 46 Year
  Sex: Female
  Weight: 52 kg

DRUGS (8)
  1. PROGRAF [Interacting]
     Active Substance: TACROLIMUS
     Indication: Prophylaxis against transplant rejection
     Dosage: 3.0MG, ONCE EVERY 0.5 DAYS, 2 YEARS
     Route: 048
     Dates: end: 20250611
  2. PAXLOVID [Interacting]
     Active Substance: NIRMATRELVIR\RITONAVIR
     Indication: COVID-19
     Dosage: 150MG NIRMATRELVIR/100MG RITONAVIR QD?DOSE ADJUSTED
     Route: 048
     Dates: start: 20250529, end: 20250531
  3. PAXLOVID [Interacting]
     Active Substance: NIRMATRELVIR\RITONAVIR
     Dosage: 300MG NIRMATRELVIR/100MG RITONAVIR BID
     Route: 048
     Dates: start: 20250527, end: 202505
  4. LOVASTATIN [Interacting]
     Active Substance: LOVASTATIN
     Indication: Product used for unknown indication
     Route: 065
     Dates: end: 20250529
  5. TRIAZOLAM [Interacting]
     Active Substance: TRIAZOLAM
     Indication: Product used for unknown indication
     Dosage: 0.25MG HS
     Route: 065
     Dates: end: 20250529
  6. CLONAZEPAM [Interacting]
     Active Substance: CLONAZEPAM
     Indication: Product used for unknown indication
     Dosage: 0.5MG HS
     Route: 065
     Dates: end: 20250529
  7. PREDNISOLONE [Concomitant]
     Active Substance: PREDNISOLONE
     Indication: Immunosuppression
     Dosage: ONGOING
     Route: 065
  8. MYFORTIC [Concomitant]
     Active Substance: MYCOPHENOLATE SODIUM
     Indication: Immunosuppression
     Dosage: ONGOING
     Route: 065

REACTIONS (5)
  - Toxicity to various agents [Recovering/Resolving]
  - Acute kidney injury [Unknown]
  - COVID-19 [Unknown]
  - Hyponatraemia [Unknown]
  - Drug interaction [Unknown]

NARRATIVE: CASE EVENT DATE: 20250526
